FAERS Safety Report 23090381 (Version 1)
Quarter: 2023Q4

REPORT INFORMATION
  Report Type: Report from Study
  Country: CA (occurrence: CA)
  Receive Date: 20231020
  Receipt Date: 20231020
  Transmission Date: 20240110
  Serious: Yes (Other)
  Sender: FDA-Public Use
  Company Number: CA-JNJFOC-20231039065

PATIENT
  Age: 28 Year
  Sex: Female

DRUGS (1)
  1. SIMPONI [Suspect]
     Active Substance: GOLIMUMAB
     Indication: Behcet^s syndrome
     Route: 058

REACTIONS (3)
  - Cerebrospinal fluid leakage [Unknown]
  - Central nervous system infection [Unknown]
  - Migraine [Unknown]

NARRATIVE: CASE EVENT DATE: 20230901
